FAERS Safety Report 9779458 (Version 1)
Quarter: 2013Q4

REPORT INFORMATION
  Report Type: Spontaneous
  Country: US (occurrence: US)
  Receive Date: 20131223
  Receipt Date: 20131223
  Transmission Date: 20140711
  Serious: Yes (Other)
  Sender: FDA-Public Use
  Company Number: US-ACTAVIS-2013-22824

PATIENT
  Age: 68 Year
  Sex: Male

DRUGS (1)
  1. TRIAMCINOLONE ACETONIDE [Suspect]
     Indication: KELOID SCAR
     Dosage: 60 MG/CC, SINGLE

REACTIONS (4)
  - Melanoma recurrent [Recovered/Resolved]
  - Metastases to lung [None]
  - Metastases to bone [None]
  - Metastases to muscle [None]
